FAERS Safety Report 8052203-5 (Version None)
Quarter: 2012Q1

REPORT INFORMATION
  Report Type: 
  Country: None (occurrence: None)
  Receive Date: 20120118
  Receipt Date: 20120116
  Transmission Date: 20120608
  Serious: No
  Sender: FDA-Public Use
  Company Number: US-PFIZER INC-2012012283

PATIENT
  Sex: Female
  Weight: 72.562 kg

DRUGS (2)
  1. EFFEXOR XR [Suspect]
     Indication: DEPRESSION
     Dosage: 225 MG, 2X/DAY
     Route: 048
     Dates: start: 20080101, end: 20111201
  2. EFFEXOR XR [Suspect]
     Indication: PERSONALITY DISORDER

REACTIONS (3)
  - MALAISE [None]
  - CRYING [None]
  - DEPRESSION [None]
